FAERS Safety Report 18068210 (Version 1)
Quarter: 2020Q3

REPORT INFORMATION
  Report Type: Spontaneous
  Country: DE (occurrence: DE)
  Receive Date: 20200724
  Receipt Date: 20200724
  Transmission Date: 20201103
  Serious: Yes (Death, Other)
  Sender: FDA-Public Use
  Company Number: DE-009507513-2007DEU007914

PATIENT
  Age: 34 Year
  Sex: Male

DRUGS (1)
  1. PEMBROLIZUMAB. [Suspect]
     Active Substance: PEMBROLIZUMAB
     Indication: HEPATIC CANCER METASTATIC
     Dates: start: 202006

REACTIONS (2)
  - Malignant neoplasm progression [Unknown]
  - Pneumonitis [Fatal]

NARRATIVE: CASE EVENT DATE: 2020
